FAERS Safety Report 21342603 (Version 1)
Quarter: 2022Q3

REPORT INFORMATION
  Report Type: Spontaneous
  Country: US (occurrence: None)
  Receive Date: 20220916
  Receipt Date: 20220916
  Transmission Date: 20221027
  Serious: Yes (Other)
  Sender: FDA-Public Use
  Company Number: None

PATIENT
  Age: 22 Year
  Sex: Female
  Weight: 49.5 kg

DRUGS (2)
  1. DUPILUMAB [Suspect]
     Active Substance: DUPILUMAB
     Indication: Dermatitis atopic
     Dosage: OTHER QUANTITY : 1 INJECTION(S);?OTHER FREQUENCY : ONCE EVERY OTHER W;?
     Route: 058
     Dates: start: 20220519
  2. MUPIROCIN [Concomitant]
     Active Substance: MUPIROCIN

REACTIONS (8)
  - Injection site pain [None]
  - Injection site erythema [None]
  - Nausea [None]
  - Dizziness [None]
  - Feeling hot [None]
  - Arthropod bite [None]
  - Swelling [None]
  - Inflammation [None]

NARRATIVE: CASE EVENT DATE: 20220908
